FAERS Safety Report 5359516-6 (Version None)
Quarter: 2007Q2

REPORT INFORMATION
  Report Type: 
  Country: None (occurrence: None)
  Receive Date: 20070615
  Receipt Date: 20070605
  Transmission Date: 20071010
  Serious: Yes (Other)
  Sender: FDA-Public Use
  Company Number: US-PFIZER INC-2007046934

PATIENT
  Sex: Female
  Weight: 49.9 kg

DRUGS (8)
  1. CHANTIX [Suspect]
     Indication: EX-SMOKER
  2. DETROL LA [Suspect]
     Indication: BLADDER DISORDER
  3. DICLOFENAC [Suspect]
     Indication: DETOXIFICATION
  4. BUPRENORPHINE HCL [Suspect]
     Indication: DETOXIFICATION
  5. CYMBALTA [Suspect]
     Indication: DETOXIFICATION
  6. AMBIEN [Suspect]
     Indication: DETOXIFICATION
  7. ROBAXIN [Concomitant]
  8. OPIOIDS [Concomitant]

REACTIONS (2)
  - DETOXIFICATION [None]
  - DRUG INEFFECTIVE [None]
